FAERS Safety Report 7389347-7 (Version None)
Quarter: 2011Q2

REPORT INFORMATION
  Report Type: 
  Country: None (occurrence: None)
  Receive Date: 20110401
  Receipt Date: 20110324
  Transmission Date: 20111010
  Serious: Yes (Other)
  Sender: FDA-Public Use
  Company Number: A0920904A

PATIENT
  Age: 48 Year
  Sex: Female
  Weight: 86.4 kg

DRUGS (5)
  1. LOTREL [Concomitant]
     Indication: HYPERTENSION
  2. PAXIL [Suspect]
     Indication: DEPRESSION
     Route: 065
     Dates: start: 20080101
  3. KLONOPIN [Concomitant]
     Indication: SLEEP DISORDER
     Dosage: 2MG AS REQUIRED
  4. METFORMIN HCL [Concomitant]
     Dosage: 500MG TWICE PER DAY
  5. CHANTIX [Suspect]
     Indication: SMOKING CESSATION THERAPY
     Route: 065
     Dates: start: 20080601

REACTIONS (2)
  - COLONIC POLYP [None]
  - ALOPECIA [None]
